FAERS Safety Report 17462137 (Version 2)
Quarter: 2020Q1

REPORT INFORMATION
  Report Type: Spontaneous
  Country: DK (occurrence: DK)
  Receive Date: 20200226
  Receipt Date: 20200306
  Transmission Date: 20200409
  Serious: Yes (Hospitalization)
  Sender: FDA-Public Use
  Company Number: DK-ALK-ABELLO A/S-2020AA000532

PATIENT

DRUGS (8)
  1. IBUPROFEN. [Concomitant]
     Active Substance: IBUPROFEN
     Dosage: 400 MILLIGRAM
     Dates: start: 20191030
  2. FINASTERIDE. [Concomitant]
     Active Substance: FINASTERIDE
     Dosage: 1 MILLIGRAM, QD
     Dates: start: 20200130
  3. GRAZAX [Suspect]
     Active Substance: PHLEUM PRATENSE POLLEN
     Indication: SEASONAL ALLERGY
     Dosage: 75000 SQ-T
     Route: 048
     Dates: start: 20191008
  4. OLOPATADINE. [Concomitant]
     Active Substance: OLOPATADINE
     Dosage: UNK
     Dates: start: 20140904
  5. CHLORZOXAZONE. [Concomitant]
     Active Substance: CHLORZOXAZONE
     Dosage: 250 MILLIGRAM
     Dates: start: 20191030
  6. PARACETAMOL [Concomitant]
     Active Substance: ACETAMINOPHEN
     Dosage: UNK
     Dates: start: 20191031
  7. FLUTICASONE. [Concomitant]
     Active Substance: FLUTICASONE
     Dosage: UNK
     Dates: start: 20190408
  8. AZELASTINE. [Concomitant]
     Active Substance: AZELASTINE HYDROCHLORIDE
     Dosage: UNK
     Dates: start: 20190408

REACTIONS (7)
  - Swollen tongue [Recovering/Resolving]
  - Oral herpes [Recovering/Resolving]
  - Pyrexia [Recovered/Resolved]
  - Oral pain [Recovering/Resolving]
  - Aphthous ulcer [Recovering/Resolving]
  - Oral mucosal erythema [Recovering/Resolving]
  - Coating in mouth [Recovering/Resolving]

NARRATIVE: CASE EVENT DATE: 202001
